FAERS Safety Report 16350943 (Version 2)
Quarter: 2019Q2

REPORT INFORMATION
  Report Type: Spontaneous
  Country: TW (occurrence: TW)
  Receive Date: 20190524
  Receipt Date: 20190611
  Transmission Date: 20190711
  Serious: Yes (Other)
  Sender: FDA-Public Use
  Company Number: TW-AMGEN-TWNSP2019080136

PATIENT
  Age: 88 Year
  Sex: Female

DRUGS (1)
  1. PROLIA [Suspect]
     Active Substance: DENOSUMAB
     Indication: OSTEOPOROSIS
     Dosage: 60 MILLIGRAM, Q6MO
     Route: 058
     Dates: start: 20190510

REACTIONS (5)
  - Renal failure [Unknown]
  - Generalised oedema [Unknown]
  - Pleural effusion [Unknown]
  - Cardiac failure [Unknown]
  - Respiratory failure [Unknown]

NARRATIVE: CASE EVENT DATE: 20190515
